FAERS Safety Report 15508052 (Version 4)
Quarter: 2018Q4

REPORT INFORMATION
  Report Type: Spontaneous
  Country: US (occurrence: US)
  Receive Date: 20181016
  Receipt Date: 20181217
  Transmission Date: 20190205
  Serious: Yes (Other)
  Sender: FDA-Public Use
  Company Number: US-PFIZER INC-2018413762

PATIENT
  Age: 5 Year
  Sex: Male
  Weight: 20 kg

DRUGS (2)
  1. CHILDRENS ADVIL [Suspect]
     Active Substance: IBUPROFEN
     Indication: PYREXIA
     Dosage: UNK UNK, SINGLE ^JUST UNDER 10ML MAYBE 8ML^
     Route: 048
     Dates: start: 20181007, end: 20181007
  2. CHILDRENS ADVIL [Suspect]
     Active Substance: IBUPROFEN
     Indication: DISCOMFORT
     Dosage: UNK UNK, SINGLE (1 1/2 TSP ADVIL GIVEN X 1 DOSE)
     Route: 048
     Dates: start: 20181007, end: 20181007

REACTIONS (3)
  - Eye swelling [Recovering/Resolving]
  - Hypersensitivity [Recovering/Resolving]
  - Swelling face [Recovered/Resolved]

NARRATIVE: CASE EVENT DATE: 20181007
